FAERS Safety Report 25760370 (Version 2)
Quarter: 2025Q3

REPORT INFORMATION
  Report Type: Spontaneous
  Country: CA (occurrence: CA)
  Receive Date: 20250904
  Receipt Date: 20250922
  Transmission Date: 20251021
  Serious: Yes (Other)
  Sender: DR REDDYS
  Company Number: None

PATIENT
  Age: 53 Year
  Sex: Male

DRUGS (6)
  1. PEMETREXED [Suspect]
     Active Substance: PEMETREXED
     Indication: Metastases to adrenals
  2. PEMETREXED [Suspect]
     Active Substance: PEMETREXED
     Indication: Lung adenocarcinoma
  3. PEMETREXED [Suspect]
     Active Substance: PEMETREXED
     Indication: Graves^ disease
  4. CARBOPLATIN [Suspect]
     Active Substance: CARBOPLATIN
     Indication: Metastases to adrenals
  5. CARBOPLATIN [Suspect]
     Active Substance: CARBOPLATIN
     Indication: Lung adenocarcinoma
  6. CARBOPLATIN [Suspect]
     Active Substance: CARBOPLATIN
     Indication: Graves^ disease

REACTIONS (2)
  - Hepatotoxicity [Unknown]
  - Off label use [Unknown]
